FAERS Safety Report 10270293 (Version 1)
Quarter: 2014Q2

REPORT INFORMATION
  Report Type: Spontaneous
  Country: GB (occurrence: None)
  Receive Date: 20140627
  Receipt Date: 20140627
  Transmission Date: 20141212
  Serious: Yes (Disabling, Other)
  Sender: FDA-Public Use
  Company Number: AUR-APL-2014-06685

PATIENT
  Age: 31 Year
  Sex: Female
  Weight: 127 kg

DRUGS (4)
  1. MIRTAZAPINE 30 MG (MIRTAZAPINE) UNKNOWN, 30MG [Suspect]
     Indication: DEPRESSION
     Route: 048
     Dates: start: 201405
  2. PAROXETINE (PAROXETINE) [Concomitant]
  3. SERTRALINE (SERTRALINE) [Concomitant]
  4. VITAMIN D3 (COLECALCIFEROL) [Concomitant]

REACTIONS (3)
  - Arthralgia [None]
  - Pyrexia [None]
  - Mobility decreased [None]
